FAERS Safety Report 4398013-1 (Version None)
Quarter: 2004Q3

REPORT INFORMATION
  Report Type: 
  Country: None (occurrence: None)
  Receive Date: 20040713
  Receipt Date: 20040713
  Transmission Date: 20050211
  Serious: No
  Sender: FDA-Public Use
  Company Number: None

PATIENT
  Age: 2 Year
  Sex: Female
  Weight: 16 kg

DRUGS (4)
  1. NAFCILLIN 800 MG IV Q6H [Suspect]
     Indication: STAPHYLOCOCCAL ABSCESS
     Dosage: 800 MG IV Q6H
     Route: 042
     Dates: start: 20040526, end: 20040607
  2. CARBAMAZEPINE [Concomitant]
  3. DIAZEPAM [Concomitant]
  4. PHENOBARBITAL TAB [Concomitant]

REACTIONS (4)
  - CONJUNCTIVITIS [None]
  - RASH GENERALISED [None]
  - RASH MACULO-PAPULAR [None]
  - URTICARIA [None]
